FAERS Safety Report 15585189 (Version 1)
Quarter: 2018Q4

REPORT INFORMATION
  Report Type: Spontaneous
  Country: US (occurrence: US)
  Receive Date: 20181105
  Receipt Date: 20181105
  Transmission Date: 20190205
  Serious: Yes (Other)
  Sender: FDA-Public Use
  Company Number: US-BAXTER-2018BAX027058

PATIENT
  Sex: Female

DRUGS (6)
  1. DEXAMETHASONE. [Suspect]
     Active Substance: DEXAMETHASONE
     Indication: PREMEDICATION
     Route: 065
  2. PALONOSETRON. [Suspect]
     Active Substance: PALONOSETRON HYDROCHLORIDE
     Indication: PREMEDICATION
     Route: 065
  3. EMEND [Suspect]
     Active Substance: APREPITANT
     Indication: PREMEDICATION
     Route: 065
  4. 0.9% SODIUM CHLORIDE INJECTION, USP IN MINI-BAG PLUS CONTAINER [Suspect]
     Active Substance: SODIUM CHLORIDE
     Indication: MEDICATION DILUTION
     Route: 065
     Dates: start: 20181004, end: 20181004
  5. VIDAZA [Suspect]
     Active Substance: AZACITIDINE
     Dosage: 4TH DOSE OUT OF 5 FOR THAT WEEK
     Route: 065
     Dates: start: 20181004, end: 20181004
  6. VIDAZA [Suspect]
     Active Substance: AZACITIDINE
     Indication: CHEMOTHERAPY
     Dosage: CHEMOTHERAPY REGIMEN (OVER A YEAR FOR 18 MONTHS)
     Route: 065

REACTIONS (8)
  - Oxygen saturation decreased [Unknown]
  - Palpitations [Unknown]
  - Dyspnoea [Unknown]
  - Blood pressure increased [Unknown]
  - Erythema [Unknown]
  - Respiratory rate increased [Unknown]
  - Chest discomfort [Unknown]
  - Flushing [Unknown]

NARRATIVE: CASE EVENT DATE: 20181004
